FAERS Safety Report 7330804-7 (Version None)
Quarter: 2011Q1

REPORT INFORMATION
  Report Type: 
  Country: None (occurrence: None)
  Receive Date: 20110304
  Receipt Date: 20110228
  Transmission Date: 20110831
  Serious: No
  Sender: FDA-Public Use
  Company Number: US-PFIZER INC-2011043731

PATIENT
  Sex: Male
  Weight: 65.76 kg

DRUGS (4)
  1. TOVIAZ [Suspect]
     Indication: HYPERTONIC BLADDER
     Dosage: 4 MG, DAILY
     Route: 048
     Dates: start: 20110101, end: 20110222
  2. TOVIAZ [Suspect]
     Dosage: 4 MG, 2X/DAY
     Route: 048
  3. XANAX [Concomitant]
     Indication: SLEEP DISORDER
     Dosage: UNK
  4. RESTORIL [Concomitant]
     Indication: SLEEP DISORDER
     Dosage: UNK

REACTIONS (1)
  - DRUG INEFFECTIVE [None]
